FAERS Safety Report 14529726 (Version 3)
Quarter: 2018Q1

REPORT INFORMATION
  Report Type: Report from Study
  Country: GR (occurrence: GR)
  Receive Date: 20180214
  Receipt Date: 20180315
  Transmission Date: 20180509
  Serious: Yes (Hospitalization)
  Sender: FDA-Public Use
  Company Number: PHHO2018GR002202

PATIENT
  Age: 78 Year
  Sex: Female
  Weight: 70 kg

DRUGS (9)
  1. NOOTROP [Concomitant]
     Active Substance: PIRACETAM
     Indication: DIPLOPIA
     Dosage: 1200 MG, BID
     Route: 048
     Dates: start: 20170701
  2. PREGABALIN. [Concomitant]
     Active Substance: PREGABALIN
     Indication: NEURALGIA
     Dosage: 75 MG, TID
     Route: 048
     Dates: start: 20171015, end: 20180130
  3. HUMALOG [Concomitant]
     Active Substance: INSULIN LISPRO
     Indication: DIABETES MELLITUS
     Dosage: 100 IU, TID
     Route: 058
     Dates: start: 19980101
  4. INNOHEP [Concomitant]
     Active Substance: TINZAPARIN SODIUM
     Indication: MOBILITY DECREASED
     Dosage: UNK,ML,QD
     Route: 058
     Dates: start: 20171015
  5. LANTUS [Concomitant]
     Active Substance: INSULIN GLARGINE
     Indication: DIABETES MELLITUS
     Dosage: 100 IU, QD
     Route: 058
     Dates: start: 19980101
  6. SYNJARDY [Concomitant]
     Active Substance: EMPAGLIFLOZIN\METFORMIN HYDROCHLORIDE
     Indication: DIABETES MELLITUS
     Dosage: 863 MG, QD
     Route: 048
     Dates: start: 20170801
  7. LEE011 [Suspect]
     Active Substance: RIBOCICLIB
     Indication: BREAST CANCER
     Dosage: 600 MG, QD
     Route: 048
     Dates: start: 20180117
  8. ZANTAC [Concomitant]
     Active Substance: RANITIDINE HYDROCHLORIDE
     Indication: GASTROOESOPHAGEAL REFLUX DISEASE
     Dosage: 150 MG, BID
     Route: 048
     Dates: start: 20080101
  9. LETROZOLE. [Suspect]
     Active Substance: LETROZOLE
     Indication: BREAST CANCER
     Dosage: UNK
     Route: 048

REACTIONS (1)
  - Atrial fibrillation [Not Recovered/Not Resolved]

NARRATIVE: CASE EVENT DATE: 20180131
